FAERS Safety Report 7757661-9 (Version None)
Quarter: 2011Q3

REPORT INFORMATION
  Report Type: 
  Country: None (occurrence: None)
  Receive Date: 20110916
  Receipt Date: 20110907
  Transmission Date: 20111222
  Serious: Yes (Hospitalization)
  Sender: FDA-Public Use
  Company Number: US-CELGENEUS-163-21880-11090833

PATIENT
  Sex: Female

DRUGS (9)
  1. CHLORDIAZEPOX [Concomitant]
     Route: 065
  2. REVLIMID [Suspect]
     Dosage: 25 MILLIGRAM
     Route: 048
     Dates: start: 20091014
  3. CALTRATE 600 [Concomitant]
     Route: 065
  4. PANTOPRAZOLE SODIUM [Concomitant]
     Route: 065
  5. DEXAMETHASONE [Concomitant]
     Route: 065
  6. CENTRUM SILVER [Concomitant]
     Route: 065
  7. ICAPS [Concomitant]
     Route: 065
  8. TYLENOL-500 [Concomitant]
     Route: 065
  9. ALPRAZOLAM [Concomitant]
     Route: 065

REACTIONS (1)
  - SPINAL FRACTURE [None]
